FAERS Safety Report 18227900 (Version 1)
Quarter: 2020Q3

REPORT INFORMATION
  Report Type: Spontaneous
  Country: SK (occurrence: SK)
  Receive Date: 20200903
  Receipt Date: 20200903
  Transmission Date: 20201103
  Serious: Yes (Death, Hospitalization)
  Sender: FDA-Public Use
  Company Number: SK-ENDO PHARMACEUTICALS INC-2020-005785

PATIENT
  Age: 46 Year
  Sex: Female

DRUGS (2)
  1. RHEUMATREX [Suspect]
     Active Substance: METHOTREXATE SODIUM
     Indication: VASCULAR PURPURA
  2. RHEUMATREX [Suspect]
     Active Substance: METHOTREXATE SODIUM
     Indication: SJOGREN^S SYNDROME
     Dosage: UNK UNKNOWN, LONG TERM TREATMENT
     Route: 065

REACTIONS (2)
  - Off label use [Fatal]
  - Leukoencephalopathy [None]
